FAERS Safety Report 17268476 (Version 1)
Quarter: 2020Q1

REPORT INFORMATION
  Report Type: Spontaneous
  Country: GB (occurrence: GB)
  Receive Date: 20200114
  Receipt Date: 20200114
  Transmission Date: 20200409
  Serious: Yes (Other)
  Sender: FDA-Public Use
  Company Number: GB-MYLANLABS-2018M1047650

PATIENT
  Age: 67 Year
  Sex: Female

DRUGS (2)
  1. CLOZARIL [Suspect]
     Active Substance: CLOZAPINE
     Dosage: UNK
     Route: 048
     Dates: start: 20010701
  2. CLOZARIL [Suspect]
     Active Substance: CLOZAPINE
     Indication: SCHIZOPHRENIA
     Dosage: UNK
     Route: 048
     Dates: start: 19980130

REACTIONS (3)
  - Anaemia [Not Recovered/Not Resolved]
  - Platelet count increased [Recovering/Resolving]
  - Differential white blood cell count abnormal [Not Recovered/Not Resolved]

NARRATIVE: CASE EVENT DATE: 20180627
